FAERS Safety Report 4532261-2 (Version None)
Quarter: 2004Q4

REPORT INFORMATION
  Report Type: 
  Country: None (occurrence: None)
  Receive Date: 20041217
  Receipt Date: 20041201
  Transmission Date: 20050328
  Serious: Yes (Hospitalization)
  Sender: FDA-Public Use
  Company Number: 173284

PATIENT
  Sex: Female

DRUGS (4)
  1. AVONEX [Suspect]
     Indication: MULTIPLE SCLEROSIS
     Dosage: SEE IMAGE
     Route: 030
     Dates: start: 19990201, end: 20030101
  2. AVONEX [Suspect]
     Indication: MULTIPLE SCLEROSIS
     Dosage: SEE IMAGE
     Route: 030
     Dates: start: 20030903, end: 20040107
  3. AVONEX [Suspect]
     Indication: MULTIPLE SCLEROSIS
     Dosage: SEE IMAGE
     Route: 030
     Dates: start: 20040317
  4. AVONEX [Suspect]

REACTIONS (6)
  - CONDITION AGGRAVATED [None]
  - LUMBAR RADICULOPATHY [None]
  - MULTIPLE SCLEROSIS [None]
  - SPINAL FUSION SURGERY [None]
  - STRESS SYMPTOMS [None]
  - WEIGHT DECREASED [None]
